FAERS Safety Report 24000693 (Version 1)
Quarter: 2024Q2

REPORT INFORMATION
  Report Type: Spontaneous
  Country: US (occurrence: None)
  Receive Date: 20240621
  Receipt Date: 20240621
  Transmission Date: 20240717
  Serious: Yes (Hospitalization)
  Sender: FDA-Public Use
  Company Number: None

PATIENT
  Age: 73 Year
  Sex: Male
  Weight: 68.85 kg

DRUGS (1)
  1. LISINOPRIL [Suspect]
     Active Substance: LISINOPRIL
     Indication: Hypertension
     Dosage: 1 TABLET AT BEDTIME ORAL
     Route: 048
     Dates: start: 20240607, end: 20240612

REACTIONS (5)
  - Malaise [None]
  - Therapy cessation [None]
  - Hypophagia [None]
  - Chest pain [None]
  - Pancreatitis [None]

NARRATIVE: CASE EVENT DATE: 20240618
